FAERS Safety Report 8629622 (Version 3)
Quarter: 2015Q3

REPORT INFORMATION
  Report Type: Spontaneous
  Country: US (occurrence: US)
  Receive Date: 20120622
  Receipt Date: 20150720
  Transmission Date: 20151125
  Serious: Yes (Disabling, Other)
  Sender: FDA-Public Use
  Company Number: US-BAYER-2012-061290

PATIENT
  Sex: Female

DRUGS (2)
  1. LYRICA [Concomitant]
     Active Substance: PREGABALIN
  2. CIPRO [Suspect]
     Active Substance: CIPROFLOXACIN HYDROCHLORIDE
     Indication: URINARY TRACT INFECTION
     Dosage: 500 MG, BID
     Dates: start: 20051112, end: 20051114

REACTIONS (12)
  - Drug hypersensitivity [None]
  - Hypoaesthesia [None]
  - Spinal column stenosis [None]
  - Abasia [None]
  - Spinal column injury [None]
  - Pain [None]
  - Hyperhidrosis [None]
  - Gastric disorder [None]
  - Abdominal pain upper [None]
  - Gastric haemorrhage [None]
  - Procedural complication [None]
  - Bladder disorder [None]
